FAERS Safety Report 9693716 (Version 2)
Quarter: 2014Q2

REPORT INFORMATION
  Report Type: Spontaneous
  Country: US (occurrence: US)
  Receive Date: 20131118
  Receipt Date: 20140520
  Transmission Date: 20141212
  Serious: Yes (Hospitalization)
  Sender: FDA-Public Use
  Company Number: US-B.I. PHARMACEUTICALS,INC./RIDGEFIELD-2013-BI-36933BP

PATIENT
  Age: 50 Year
  Sex: Male
  Weight: 127.01 kg

DRUGS (9)
  1. PRADAXA [Suspect]
     Indication: ATRIAL FIBRILLATION
     Dosage: 300 MG
     Route: 048
     Dates: start: 20110510, end: 20121230
  2. TOPIRAMATE [Concomitant]
     Dosage: 25 MG
     Route: 048
  3. BUTALBITAL- ACETAMINOPHEN-CAFFEINE-CODEINE [Concomitant]
     Indication: HEADACHE
     Dosage: DAILY DOSE: 50MG-325MG-40MG-30-MAG; 1-2 CAPSULES
     Route: 065
  4. RIZATRIPTAN [Concomitant]
     Route: 048
  5. AMIODARONE [Concomitant]
     Dosage: 800 MG
     Route: 048
  6. ROSUVASTATIN [Concomitant]
     Dosage: 10 MG
     Route: 048
  7. ATENOLOL [Concomitant]
     Dosage: 25 MG
     Route: 048
  8. FIBER [Concomitant]
     Dosage: 1 ANZ
     Route: 048
  9. STOOL SOFTENER [Concomitant]
     Dosage: 1 ANZ
     Route: 048

REACTIONS (1)
  - Subdural haematoma [Unknown]
